FAERS Safety Report 10014036 (Version 3)
Quarter: 2014Q2

REPORT INFORMATION
  Report Type: Spontaneous
  Country: US (occurrence: US)
  Receive Date: 20140317
  Receipt Date: 20140429
  Transmission Date: 20141212
  Serious: Yes (Other)
  Sender: FDA-Public Use
  Company Number: US-009507513-1403USA003949

PATIENT
  Age: 67 Year
  Sex: Female

DRUGS (6)
  1. JANUMET [Suspect]
     Indication: DIABETES MELLITUS
     Dosage: 50/100 MG, ONE TABLET TWICE A DAY
     Route: 048
     Dates: start: 2010
  2. MEVACOR TABLET [Concomitant]
  3. METOPROLOL [Concomitant]
  4. ASPIRIN [Concomitant]
  5. GLIMEPIRIDE [Concomitant]
  6. ENALAPRIL MALEATE [Concomitant]

REACTIONS (11)
  - Myocardial infarction [Not Recovered/Not Resolved]
  - Herpes ophthalmic [Unknown]
  - Electrocardiogram abnormal [Not Recovered/Not Resolved]
  - QRS axis abnormal [Not Recovered/Not Resolved]
  - Rhinorrhoea [Not Recovered/Not Resolved]
  - Sinusitis [Not Recovered/Not Resolved]
  - Urinary tract infection [Not Recovered/Not Resolved]
  - Haemorrhoids [Not Recovered/Not Resolved]
  - Diarrhoea [Not Recovered/Not Resolved]
  - Headache [Not Recovered/Not Resolved]
  - Therapeutic response changed [Unknown]
